FAERS Safety Report 17903376 (Version 10)
Quarter: 2021Q2

REPORT INFORMATION
  Report Type: Other
  Country: DE (occurrence: DE)
  Receive Date: 20200617
  Receipt Date: 20210628
  Transmission Date: 20210717
  Serious: Yes (Life-Threatening, Other)
  Sender: FDA-Public Use
  Company Number: DE-ROCHE-2587856

PATIENT
  Age: 40 Year
  Sex: Female
  Weight: 70 kg

DRUGS (17)
  1. OCRELIZUMAB. [Suspect]
     Active Substance: OCRELIZUMAB
     Route: 042
     Dates: start: 20181015, end: 20181029
  2. METHYLPREDNISOLON [Concomitant]
     Active Substance: METHYLPREDNISOLONE
     Indication: PROPHYLAXIS
     Dosage: PROPHYLAXIS TO PREVENT INFUSION RELATED REACTIONS
     Route: 042
     Dates: start: 20181015, end: 20181029
  3. TOVEDESO [Concomitant]
     Route: 048
  4. FAMPYRA [Concomitant]
     Active Substance: DALFAMPRIDINE
     Dosage: WALKING ABILITY
     Route: 048
     Dates: start: 20120124
  5. CITALOPRAM [Concomitant]
     Active Substance: CITALOPRAM HYDROBROMIDE
     Indication: DEPRESSION
     Route: 048
     Dates: end: 201910
  6. PARACETAMOL [Concomitant]
     Active Substance: ACETAMINOPHEN
     Route: 042
     Dates: start: 20181015, end: 20181029
  7. TILIDIN [Concomitant]
     Active Substance: NALOXONE HYDROCHLORIDE\TILIDINE HYDROCHLORIDE
     Indication: TRIGEMINAL NEURALGIA
     Dosage: DEFINITION OF THE INTERVAL: AS REQUIRED
     Route: 048
     Dates: start: 20190214, end: 201905
  8. PREGABALIN. [Concomitant]
     Active Substance: PREGABALIN
     Indication: TRIGEMINAL NEURALGIA
     Route: 048
     Dates: start: 20190214, end: 201904
  9. CARBAMAZEPIN [Concomitant]
     Active Substance: CARBAMAZEPINE
     Indication: TRIGEMINAL NEURALGIA
     Route: 048
     Dates: start: 201905, end: 201906
  10. TAVEGIL [Concomitant]
     Active Substance: CLEMASTINE FUMARATE
     Indication: PROPHYLAXIS
     Dosage: PROPHYLAXIS TO PREVENT INFUSION RELATED REACTIONS
     Route: 042
     Dates: start: 20190513
  11. TAVEGIL [Concomitant]
     Active Substance: CLEMASTINE FUMARATE
     Route: 042
     Dates: start: 20181015, end: 20181029
  12. PARACETAMOL [Concomitant]
     Active Substance: ACETAMINOPHEN
     Indication: PROPHYLAXIS
     Route: 042
     Dates: start: 20190513
  13. OCRELIZUMAB. [Suspect]
     Active Substance: OCRELIZUMAB
     Indication: RELAPSING MULTIPLE SCLEROSIS
     Dosage: ON 18/NOV/2019, RECEIVED MOST RECENT DOSE.
     Route: 042
     Dates: start: 20190513
  14. CARBAMAZEPIN [Concomitant]
     Active Substance: CARBAMAZEPINE
     Route: 048
     Dates: start: 201904, end: 201905
  15. METHYLPREDNISOLON [Concomitant]
     Active Substance: METHYLPREDNISOLONE
     Dosage: PROPHYLAXIS TO PREVENT INFUSION RELATED REACTIONS
     Route: 042
     Dates: start: 20190513
  16. LEVETIRACETAM. [Concomitant]
     Active Substance: LEVETIRACETAM
  17. BACLOFEN. [Concomitant]
     Active Substance: BACLOFEN
     Indication: MUSCLE SPASTICITY
     Route: 048
     Dates: start: 201903, end: 201906

REACTIONS (5)
  - Abdominal pain [Unknown]
  - Metastasis [Unknown]
  - Decreased appetite [Unknown]
  - Metastatic malignant melanoma [Unknown]
  - Weight decreased [Unknown]

NARRATIVE: CASE EVENT DATE: 202002
